FAERS Safety Report 22373502 (Version 11)
Quarter: 2025Q4

REPORT INFORMATION
  Report Type: Spontaneous
  Country: EU (occurrence: EU)
  Receive Date: 20230526
  Receipt Date: 20251202
  Transmission Date: 20260118
  Serious: Yes (Death, Life-Threatening, Hospitalization, Other)
  Sender: MYLAN
  Company Number: EU-002147023-NVSC2023CZ110212

PATIENT
  Age: 68 Year
  Sex: Male

DRUGS (24)
  1. DOXORUBICIN [Suspect]
     Active Substance: DOXORUBICIN
     Indication: Plasma cell myeloma
     Dosage: BDD REGIMEN, (BORTEZIMID. DOXORUBICIN, DEXAMETHASONE) FIRST CYCLE
  2. DOXORUBICIN [Suspect]
     Active Substance: DOXORUBICIN
     Dosage: BDD REGIMEN, (BORTEZIMID. DOXORUBICIN, DEXAMETHASONE) FIRST CYCLE
     Route: 065
  3. DOXORUBICIN [Suspect]
     Active Substance: DOXORUBICIN
     Dosage: BDD REGIMEN, (BORTEZIMID. DOXORUBICIN, DEXAMETHASONE) FIRST CYCLE
     Route: 065
  4. DOXORUBICIN [Suspect]
     Active Substance: DOXORUBICIN
     Dosage: BDD REGIMEN, (BORTEZIMID. DOXORUBICIN, DEXAMETHASONE) FIRST CYCLE
  5. DEXAMETHASONE [Suspect]
     Active Substance: DEXAMETHASONE
     Indication: Plasma cell myeloma
     Dosage: BDD REGIMEN, (BORTEZIMID. DOXORUBICIN, DEXAMETHASONE) FIRST CYCLE
     Route: 065
  6. DEXAMETHASONE [Suspect]
     Active Substance: DEXAMETHASONE
     Dosage: BDD REGIMEN, (BORTEZIMID. DOXORUBICIN, DEXAMETHASONE) FIRST CYCLE
  7. DEXAMETHASONE [Suspect]
     Active Substance: DEXAMETHASONE
     Dosage: BDD REGIMEN, (BORTEZIMID. DOXORUBICIN, DEXAMETHASONE) FIRST CYCLE
  8. DEXAMETHASONE [Suspect]
     Active Substance: DEXAMETHASONE
     Dosage: BDD REGIMEN, (BORTEZIMID. DOXORUBICIN, DEXAMETHASONE) FIRST CYCLE
     Route: 065
  9. DEXAMETHASONE [Suspect]
     Active Substance: DEXAMETHASONE
     Dosage: UNK
     Route: 065
  10. DEXAMETHASONE [Suspect]
     Active Substance: DEXAMETHASONE
     Dosage: UNK
  11. DEXAMETHASONE [Suspect]
     Active Substance: DEXAMETHASONE
     Dosage: UNK
  12. DEXAMETHASONE [Suspect]
     Active Substance: DEXAMETHASONE
     Dosage: UNK
     Route: 065
  13. VELCADE [Suspect]
     Active Substance: BORTEZOMIB
     Indication: Plasma cell myeloma
     Dosage: BDD REGIMEN (BORTEZIMID. DOXORUBICIN, DEXAMETHASONE) FIRST CYCLE
  14. VELCADE [Suspect]
     Active Substance: BORTEZOMIB
     Dosage: BDD REGIMEN (BORTEZIMID. DOXORUBICIN, DEXAMETHASONE) FIRST CYCLE
     Route: 065
  15. VELCADE [Suspect]
     Active Substance: BORTEZOMIB
     Dosage: BDD REGIMEN (BORTEZIMID. DOXORUBICIN, DEXAMETHASONE) FIRST CYCLE
     Route: 065
  16. VELCADE [Suspect]
     Active Substance: BORTEZOMIB
     Dosage: BDD REGIMEN (BORTEZIMID. DOXORUBICIN, DEXAMETHASONE) FIRST CYCLE
  17. BORTEZOMIB [Suspect]
     Active Substance: BORTEZOMIB
     Indication: Plasma cell myeloma
     Dosage: UNK
  18. BORTEZOMIB [Suspect]
     Active Substance: BORTEZOMIB
     Dosage: UNK
     Route: 065
  19. BORTEZOMIB [Suspect]
     Active Substance: BORTEZOMIB
     Dosage: UNK
     Route: 065
  20. BORTEZOMIB [Suspect]
     Active Substance: BORTEZOMIB
     Dosage: UNK
  21. INDAPAMIDE\PERINDOPRIL ARGININE [Concomitant]
     Active Substance: INDAPAMIDE\PERINDOPRIL ARGININE
     Indication: Hypertension
     Dosage: UNK
  22. INDAPAMIDE\PERINDOPRIL ARGININE [Concomitant]
     Active Substance: INDAPAMIDE\PERINDOPRIL ARGININE
     Dosage: UNK
     Route: 065
  23. INDAPAMIDE\PERINDOPRIL ARGININE [Concomitant]
     Active Substance: INDAPAMIDE\PERINDOPRIL ARGININE
     Dosage: UNK
     Route: 065
  24. INDAPAMIDE\PERINDOPRIL ARGININE [Concomitant]
     Active Substance: INDAPAMIDE\PERINDOPRIL ARGININE
     Dosage: UNK

REACTIONS (8)
  - Malignant neoplasm progression [Fatal]
  - Haematotoxicity [Fatal]
  - Urinary tract infection [Fatal]
  - Anaemia [Not Recovered/Not Resolved]
  - Thrombocytopenia [Not Recovered/Not Resolved]
  - Neutropenia [Not Recovered/Not Resolved]
  - Plasma cell myeloma [Unknown]
  - Disease progression [Unknown]

NARRATIVE: CASE EVENT DATE: 20230101
